FAERS Safety Report 22932844 (Version 7)
Quarter: 2024Q2

REPORT INFORMATION
  Report Type: Report from Study
  Country: US (occurrence: US)
  Receive Date: 20230912
  Receipt Date: 20240419
  Transmission Date: 20240715
  Serious: No
  Sender: FDA-Public Use
  Company Number: US-002147023-NVSC2023US196123

PATIENT
  Sex: Female

DRUGS (1)
  1. KESIMPTA [Suspect]
     Active Substance: OFATUMUMAB
     Indication: Product used for unknown indication
     Dosage: UNK, QW
     Route: 065
     Dates: start: 20230901

REACTIONS (6)
  - Oral herpes [Unknown]
  - Stomatitis [Unknown]
  - Nasopharyngitis [Unknown]
  - Headache [Unknown]
  - Device malfunction [Unknown]
  - Drug dose omission by device [Unknown]
